FAERS Safety Report 21816064 (Version 8)
Quarter: 2023Q1

REPORT INFORMATION
  Report Type: Spontaneous
  Country: PT (occurrence: PT)
  Receive Date: 20230104
  Receipt Date: 20230309
  Transmission Date: 20230418
  Serious: Yes (Hospitalization, Other)
  Sender: FDA-Public Use
  Company Number: PT-MYLANLABS-2022M1118412

PATIENT
  Age: 81 Year
  Sex: Male

DRUGS (6)
  1. GABAPENTIN [Interacting]
     Active Substance: GABAPENTIN
     Indication: Phantom limb syndrome
     Dosage: UNK
     Route: 048
  2. GABAPENTIN [Interacting]
     Active Substance: GABAPENTIN
     Dosage: UNK, SOS
     Route: 065
  3. MORPHINE HYDROCHLORIDE [Interacting]
     Active Substance: MORPHINE HYDROCHLORIDE
     Indication: Phantom limb syndrome
     Dosage: UNK UNK, PRN (SOS)
     Route: 048
  4. MORPHINE HYDROCHLORIDE [Interacting]
     Active Substance: MORPHINE HYDROCHLORIDE
     Indication: Pain
  5. BUPRENORPHINE [Interacting]
     Active Substance: BUPRENORPHINE
     Indication: Pain
     Dosage: UNK
     Route: 062
  6. BUPRENORPHINE [Interacting]
     Active Substance: BUPRENORPHINE
     Indication: Phantom limb syndrome

REACTIONS (6)
  - Confusional state [Recovered/Resolved]
  - Pyrexia [Recovered/Resolved]
  - Drug interaction [Recovered/Resolved]
  - Potentiating drug interaction [Unknown]
  - Labelled drug-drug interaction medication error [Recovered/Resolved]
  - Drug ineffective [Unknown]
